FAERS Safety Report 9665434 (Version 1)
Quarter: 2013Q4

REPORT INFORMATION
  Report Type: Spontaneous
  Country: US (occurrence: None)
  Receive Date: 20131031
  Receipt Date: 20131031
  Transmission Date: 20140711
  Serious: No
  Sender: FDA-Public Use
  Company Number: None

PATIENT
  Age: 64 None
  Sex: Male

DRUGS (24)
  1. BUTRANS [Suspect]
     Indication: BACK PAIN
     Dosage: 4 PATCHES 1 PATCH FOR 7 DAYS ON THE SKIN
     Dates: start: 20130426, end: 20130930
  2. BUTRANS [Suspect]
     Indication: BACK PAIN
     Dosage: 4 PATCHES 1 PATCH FOR 7 DAYS ON THE SKIN
     Dates: start: 20130426, end: 20130930
  3. BUTRANS [Suspect]
     Indication: SPINAL FUSION SURGERY
     Dosage: 4 PATCHES 1 PATCH FOR 7 DAYS ON THE SKIN
     Dates: start: 20130426, end: 20130930
  4. BUTRANS [Suspect]
     Indication: INTERVERTEBRAL DISC DISORDER
     Dosage: 4 PATCHES 1 PATCH FOR 7 DAYS ON THE SKIN
     Dates: start: 20130426, end: 20130930
  5. BUTRANS [Suspect]
     Indication: SPINAL FUSION SURGERY
     Dosage: 4 PATCHES 1 PATCH FOR 7 DAYS ON THE SKIN
     Dates: start: 20130426, end: 20130930
  6. IRBESARTAN TABS(BLOOD PRESSURE) [Concomitant]
  7. HYDROCODONE/APA [Concomitant]
  8. TAMSULOSIN [Concomitant]
  9. CYCLOBENZAPRINE [Concomitant]
  10. MELOXICAM(MOBIC) [Concomitant]
  11. NOVLOG INSULIN [Concomitant]
  12. LANTUS INSULIN [Concomitant]
  13. LATANOPROST DROPS [Concomitant]
  14. VITAMIN A [Concomitant]
  15. VITAMIN B-100 COMPLEX [Concomitant]
  16. VITAMIN C [Concomitant]
  17. VITAMIN D3 [Concomitant]
  18. CALCIUM [Concomitant]
  19. CENTRUM SILVER A TO Z [Concomitant]
  20. MAGNESIUM [Concomitant]
  21. ZINC [Concomitant]
  22. CHROMIUM [Concomitant]
  23. PICOLINATE [Concomitant]
  24. CINNAMON BARK [Concomitant]

REACTIONS (2)
  - Blood glucose increased [None]
  - Therapy cessation [None]
